FAERS Safety Report 7770445-0 (Version None)
Quarter: 2011Q3

REPORT INFORMATION
  Report Type: 
  Country: None (occurrence: None)
  Receive Date: 20110922
  Receipt Date: 20101021
  Transmission Date: 20111222
  Serious: Yes (Hospitalization)
  Sender: FDA-Public Use
  Company Number: US-ASTRAZENECA-2010SE49902

PATIENT
  Age: 20 Year
  Sex: Female

DRUGS (5)
  1. ANTIDEPRESSANT [Concomitant]
     Indication: DEPRESSION
  2. SEROQUEL [Suspect]
     Indication: BIPOLAR I DISORDER
     Route: 048
  3. KLONOPIN [Concomitant]
  4. LORTAB [Concomitant]
  5. PERCOCET [Concomitant]

REACTIONS (1)
  - PANCREATITIS ACUTE [None]
